FAERS Safety Report 5950331-9 (Version None)
Quarter: 2008Q4

REPORT INFORMATION
  Report Type: 
  Country: None (occurrence: None)
  Receive Date: 20081112
  Receipt Date: 20081029
  Transmission Date: 20090506
  Serious: Yes (Hospitalization, Other)
  Sender: FDA-Public Use
  Company Number: PHHY2008JP14505

PATIENT
  Sex: Male
  Weight: 58.5 kg

DRUGS (8)
  1. EXJADE [Suspect]
     Indication: IRON OVERLOAD
     Dosage: 1000 MG/DAY
     Route: 048
     Dates: start: 20080520, end: 20080716
  2. HYDREA [Concomitant]
     Indication: IRON OVERLOAD
     Dosage: 1000 MG
     Route: 048
  3. ALOSITOL [Concomitant]
     Indication: IRON OVERLOAD
     Dosage: 200 MG
     Route: 048
  4. OMEPRAL [Concomitant]
     Indication: CARDIAC FAILURE
     Dosage: 20 MG
     Route: 048
  5. LANIRAPID [Concomitant]
     Indication: CARDIAC FAILURE
     Dosage: 0.1 MG
     Route: 048
     Dates: start: 20080128, end: 20080818
  6. LASIX [Concomitant]
     Indication: CARDIAC FAILURE
     Dosage: 20 MG
     Route: 048
     Dates: start: 20080128, end: 20080818
  7. ALDACTONE [Concomitant]
     Indication: CARDIAC FAILURE
     Dosage: 12.5 MG
     Route: 048
     Dates: start: 20080128, end: 20080818
  8. TRANSFUSIONS [Concomitant]
     Dosage: 2 UNITS TWICE A WEEK
     Dates: start: 20080201, end: 20080808

REACTIONS (11)
  - BLOOD LACTATE DEHYDROGENASE INCREASED [None]
  - CARDIOMEGALY [None]
  - GAMMA-GLUTAMYLTRANSFERASE INCREASED [None]
  - PARAESTHESIA ORAL [None]
  - PERICARDIAL EFFUSION [None]
  - PLATELET COUNT DECREASED [None]
  - PNEUMONIA [None]
  - RASH [None]
  - RED BLOOD CELL COUNT DECREASED [None]
  - SERUM FERRITIN INCREASED [None]
  - WHITE BLOOD CELL COUNT INCREASED [None]
